FAERS Safety Report 12486171 (Version 1)
Quarter: 2016Q2

REPORT INFORMATION
  Report Type: Spontaneous
  Country: JP (occurrence: JP)
  Receive Date: 20160621
  Receipt Date: 20160621
  Transmission Date: 20160815
  Serious: Yes (Hospitalization, Disabling)
  Sender: FDA-Public Use
  Company Number: JP-TAKEDA-2016TUS010439

PATIENT
  Age: 62 Year
  Sex: Male

DRUGS (6)
  1. LOXONIN [Suspect]
     Active Substance: LOXOPROFEN SODIUM
     Indication: PAIN
     Dosage: 60 MG, TID
     Route: 048
     Dates: end: 20160325
  2. FEBURIC [Suspect]
     Active Substance: FEBUXOSTAT
     Indication: HYPERURICAEMIA
     Dosage: 10 MG, QD
     Route: 048
     Dates: start: 20150318, end: 20150512
  3. NATRIX [Concomitant]
     Active Substance: INDAPAMIDE
     Indication: PRODUCT USED FOR UNKNOWN INDICATION
     Dosage: UNK
     Route: 048
     Dates: start: 20101130
  4. OLMETEC [Suspect]
     Active Substance: OLMESARTAN MEDOXOMIL
     Indication: HYPERTENSION
     Dosage: 20 MG, QD
     Route: 048
     Dates: start: 20110405, end: 20160325
  5. CALBLOCK [Concomitant]
     Active Substance: AZELNIDIPINE
     Indication: HYPERTENSION
     Dosage: 16 MG, QD
     Route: 048
     Dates: start: 20100603
  6. FEBURIC [Suspect]
     Active Substance: FEBUXOSTAT
     Dosage: 20 MG, QD
     Route: 048
     Dates: start: 20150513

REACTIONS (2)
  - Hyperkalaemia [Recovered/Resolved]
  - Renal disorder [Not Recovered/Not Resolved]

NARRATIVE: CASE EVENT DATE: 20160217
